FAERS Safety Report 9806081 (Version 2)
Quarter: 2014Q3

REPORT INFORMATION
  Report Type: Spontaneous
  Country: DE (occurrence: None)
  Receive Date: 20140107
  Receipt Date: 20140724
  Transmission Date: 20150326
  Serious: Yes (Life-Threatening, Hospitalization, Disabling, Congenital Anomaly, Other)
  Sender: FDA-Public Use
  Company Number: AUR-APL-2013-10795

PATIENT
  Age: 0 Day
  Sex: Female
  Weight: 3.9 kg

DRUGS (5)
  1. METOPROLOL [Suspect]
     Active Substance: METOPROLOL
     Indication: HYPERTENSION
     Route: 064
     Dates: start: 20130610
  2. HYDROCHLOROTHIAZIDE\METOPROLOL TARTRATE [Suspect]
     Active Substance: HYDROCHLOROTHIAZIDE\METOPROLOL TARTRATE
     Indication: PRODUCT USED FOR UNKNOWN INDICATION
     Route: 064
     Dates: start: 20130610
  3. LOSARTAN [Suspect]
     Active Substance: LOSARTAN
     Indication: BLOOD PRESSURE ABNORMAL
     Route: 064
  4. CANDESARTAN [Suspect]
     Active Substance: CANDESARTAN
     Indication: HYPERTENSION
     Route: 064
  5. PRESINOL (METHYLDOPA) [Concomitant]

REACTIONS (9)
  - Atrial septal defect [None]
  - Renal impairment neonatal [None]
  - Cerebral infarction [None]
  - Renal failure acute [None]
  - Oligohydramnios [None]
  - Renal infarct [None]
  - Vena cava thrombosis [None]
  - Renal hypertrophy [None]
  - Maternal drugs affecting foetus [None]

NARRATIVE: CASE EVENT DATE: 20131128
